FAERS Safety Report 26126568 (Version 1)
Quarter: 2025Q4

REPORT INFORMATION
  Report Type: Spontaneous
  Country: EU (occurrence: EU)
  Receive Date: 20251205
  Receipt Date: 20251205
  Transmission Date: 20260118
  Serious: Yes (Life-Threatening, Other)
  Sender: MYLAN
  Company Number: None

PATIENT
  Age: 9 Year
  Sex: Male

DRUGS (8)
  1. ACETAMINOPHEN [4]
     Active Substance: ACETAMINOPHEN
     Indication: Product used for unknown indication
     Dosage: UNK
     Dates: start: 20250422, end: 20250422
  2. ACETAMINOPHEN [4]
     Active Substance: ACETAMINOPHEN
     Dosage: UNK
     Route: 048
     Dates: start: 20250422, end: 20250422
  3. ACETAMINOPHEN [4]
     Active Substance: ACETAMINOPHEN
     Dosage: UNK
     Route: 048
     Dates: start: 20250422, end: 20250422
  4. ACETAMINOPHEN [4]
     Active Substance: ACETAMINOPHEN
     Dosage: UNK
     Dates: start: 20250422, end: 20250422
  5. DEXKETOPROFEN [Suspect]
     Active Substance: DEXKETOPROFEN
     Indication: Product used for unknown indication
     Dosage: 25 MILLIGRAM,1 TOTAL
     Dates: start: 20250422, end: 20250422
  6. DEXKETOPROFEN [Suspect]
     Active Substance: DEXKETOPROFEN
     Dosage: 25 MILLIGRAM,1 TOTAL
     Route: 048
     Dates: start: 20250422, end: 20250422
  7. DEXKETOPROFEN [Suspect]
     Active Substance: DEXKETOPROFEN
     Dosage: 25 MILLIGRAM,1 TOTAL
     Route: 048
     Dates: start: 20250422, end: 20250422
  8. DEXKETOPROFEN [Suspect]
     Active Substance: DEXKETOPROFEN
     Dosage: 25 MILLIGRAM,1 TOTAL
     Dates: start: 20250422, end: 20250422

REACTIONS (5)
  - Anaphylactic reaction [Recovered/Resolved]
  - Lip oedema [Recovered/Resolved]
  - Vomiting [Recovered/Resolved]
  - Rash [Recovered/Resolved]
  - Wrong drug [Recovered/Resolved]

NARRATIVE: CASE EVENT DATE: 20250422
